FAERS Safety Report 9363461 (Version 1)
Quarter: 2013Q2

REPORT INFORMATION
  Report Type: Spontaneous
  Country: FR (occurrence: None)
  Receive Date: 20130618
  Receipt Date: 20130618
  Transmission Date: 20140414
  Serious: Yes (Hospitalization)
  Sender: FDA-Public Use
  Company Number: SYM-2013-04630

PATIENT
  Age: 80 Year
  Sex: Female

DRUGS (5)
  1. FLAGYL [Suspect]
     Indication: DIARRHOEA
     Dates: start: 20130308
  2. BACTRIM [Suspect]
     Indication: DIARRHOEA
     Dates: start: 20130308
  3. AXELER [Suspect]
     Indication: BLOOD PRESSURE INCREASED
     Dates: start: 20130315
  4. NEBILOX (NEBIVOLOL HYDROCHLORIE) (NEBIVOLOL HYDROCHLORIDE)(NEB IVOLOL HYDROCHLORIDE) [Concomitant]
  5. FUROSEMIDE (FUROSEMIDE) (FUROSEMINDE [Concomitant]

REACTIONS (1)
  - Renal failure acute [None]
